FAERS Safety Report 14927513 (Version 1)
Quarter: 2018Q2

REPORT INFORMATION
  Report Type: Spontaneous
  Country: US (occurrence: US)
  Receive Date: 20180523
  Receipt Date: 20180523
  Transmission Date: 20180711
  Serious: Yes (Hospitalization, Other)
  Sender: FDA-Public Use
  Company Number: PHEH2018US018838

PATIENT
  Age: 29 Year
  Sex: Male

DRUGS (1)
  1. TRILEPTAL [Suspect]
     Active Substance: OXCARBAZEPINE
     Indication: EPILEPSY
     Route: 065

REACTIONS (13)
  - Focal dyscognitive seizures [Unknown]
  - Electrocardiogram abnormal [Unknown]
  - Aggression [Unknown]
  - Generalised tonic-clonic seizure [Unknown]
  - Blepharospasm [Unknown]
  - Amnesia [Unknown]
  - Speech disorder [Unknown]
  - Confusional state [Unknown]
  - Insomnia [Unknown]
  - Loss of consciousness [Unknown]
  - Flashback [Unknown]
  - Energy increased [Unknown]
  - Somnolence [Unknown]

NARRATIVE: CASE EVENT DATE: 20140319
